FAERS Safety Report 6582733-4 (Version None)
Quarter: 2010Q1

REPORT INFORMATION
  Report Type: 
  Country: None (occurrence: None)
  Receive Date: 20100216
  Receipt Date: 20100205
  Transmission Date: 20100710
  Serious: Yes (Hospitalization, Other)
  Sender: FDA-Public Use
  Company Number: US-SANOFI-AVENTIS-2010SA008127

PATIENT
  Sex: Male
  Weight: 86.17 kg

DRUGS (4)
  1. PLAVIX [Suspect]
     Route: 048
     Dates: start: 20070101, end: 20090901
  2. PLAVIX [Suspect]
     Route: 048
     Dates: start: 20091014
  3. ANTIHYPERTENSIVES [Concomitant]
     Indication: HYPERTENSION
  4. VITAMINS [Concomitant]

REACTIONS (4)
  - DECREASED APPETITE [None]
  - DERMATITIS BULLOUS [None]
  - HAEMORRHAGE [None]
  - VASCULAR OCCLUSION [None]
